FAERS Safety Report 6667533-9 (Version None)
Quarter: 2010Q2

REPORT INFORMATION
  Report Type: 
  Country: None (occurrence: None)
  Receive Date: 20100405
  Receipt Date: 20100329
  Transmission Date: 20101027
  Serious: Yes (Other)
  Sender: FDA-Public Use
  Company Number: CHPA2010US06073

PATIENT
  Age: 46 Year
  Sex: Female
  Weight: 54.422 kg

DRUGS (3)
  1. VOLTAREN [Suspect]
     Indication: BACK PAIN
     Dosage: UNK, SEVERAL TIMES DAILY
     Route: 061
     Dates: start: 20090101
  2. VOLTAREN [Suspect]
     Indication: PAIN IN EXTREMITY
  3. ANTIHYPERTENSIVES [Concomitant]
     Indication: HYPERTENSION

REACTIONS (6)
  - APPLICATION SITE VESICLES [None]
  - DRUG ADMINISTERED AT INAPPROPRIATE SITE [None]
  - INAPPROPRIATE SCHEDULE OF DRUG ADMINISTRATION [None]
  - OFF LABEL USE [None]
  - SURGERY [None]
  - THERAPEUTIC RESPONSE UNEXPECTED [None]
